FAERS Safety Report 16946706 (Version 2)
Quarter: 2019Q4

REPORT INFORMATION
  Report Type: Spontaneous
  Country: US (occurrence: US)
  Receive Date: 20191022
  Receipt Date: 20191202
  Transmission Date: 20200122
  Serious: No
  Sender: FDA-Public Use
  Company Number: US-PFIZER INC-2019452625

PATIENT
  Age: 55 Year
  Sex: Female
  Weight: 90.7 kg

DRUGS (1)
  1. LYRICA [Suspect]
     Active Substance: PREGABALIN
     Indication: PAIN
     Dosage: UNK, 2X/DAY
     Dates: start: 201801

REACTIONS (1)
  - Drug ineffective [Not Recovered/Not Resolved]
